FAERS Safety Report 6992827-7 (Version None)
Quarter: 2010Q3

REPORT INFORMATION
  Report Type: 
  Country: None (occurrence: None)
  Receive Date: 20100917
  Receipt Date: 20100910
  Transmission Date: 20110219
  Serious: Yes (Other)
  Sender: FDA-Public Use
  Company Number: A0881451A

PATIENT
  Age: 65 Year
  Sex: Female
  Weight: 72.1 kg

DRUGS (8)
  1. ADVAIR DISKUS 100/50 [Suspect]
     Indication: BRONCHITIS
     Route: 065
     Dates: start: 20100701, end: 20100803
  2. OMNARIS [Suspect]
     Indication: BRONCHITIS
     Dosage: 100MCG TWICE PER DAY
     Route: 045
     Dates: start: 20100701, end: 20100803
  3. LOSARTAN POTASSIUM [Concomitant]
  4. PRAVASTATIN [Concomitant]
  5. THYROID TAB [Concomitant]
  6. VITAMINS [Concomitant]
  7. ZITHROMAX [Concomitant]
  8. CODEINE [Concomitant]

REACTIONS (2)
  - AGEUSIA [None]
  - ANOSMIA [None]
